FAERS Safety Report 5273939-5 (Version None)
Quarter: 2007Q1

REPORT INFORMATION
  Report Type: 
  Country: None (occurrence: None)
  Receive Date: 20070323
  Receipt Date: 20070316
  Transmission Date: 20070707
  Serious: Yes (Hospitalization, Other)
  Sender: FDA-Public Use
  Company Number: FR-ELI_LILLY_AND_COMPANY-FR200703003351

PATIENT
  Age: 73 Year
  Sex: Female
  Weight: 47 kg

DRUGS (2)
  1. GEMZAR [Suspect]
     Indication: PANCREATIC CARCINOMA METASTATIC
     Route: 042
     Dates: start: 20060926, end: 20061214
  2. GEMZAR [Suspect]
     Dosage: 1424 MG, OTHER
     Route: 042
     Dates: start: 20070125

REACTIONS (7)
  - DIARRHOEA [None]
  - HYPERTENSION [None]
  - HYPOKALAEMIA [None]
  - PANCYTOPENIA [None]
  - PYREXIA [None]
  - VENOUS THROMBOSIS [None]
  - WEIGHT DECREASED [None]
